FAERS Safety Report 16476971 (Version 2)
Quarter: 2019Q3

REPORT INFORMATION
  Report Type: Report from Study
  Country: None (occurrence: CZ)
  Receive Date: 20190626
  Receipt Date: 20190731
  Transmission Date: 20191004
  Serious: Yes (Hospitalization)
  Sender: FDA-Public Use
  Company Number: CZ-ABBVIE-19K-217-2829864-00

PATIENT
  Age: 40 Year
  Sex: Male
  Weight: 90.5 kg

DRUGS (2)
  1. HUMIRA [Suspect]
     Active Substance: ADALIMUMAB
     Indication: ANKYLOSING SPONDYLITIS
     Route: 058
     Dates: start: 20180611
  2. HUMIRA [Suspect]
     Active Substance: ADALIMUMAB
     Route: 058

REACTIONS (7)
  - Melaena [Recovered/Resolved]
  - Gastrooesophageal sphincter insufficiency [Unknown]
  - Gastric ulcer [Recovered/Resolved]
  - Duodenitis [Unknown]
  - Oesophagitis [Unknown]
  - Haematemesis [Recovered/Resolved]
  - Diarrhoea [Recovering/Resolving]

NARRATIVE: CASE EVENT DATE: 20190527
